FAERS Safety Report 20713560 (Version 8)
Quarter: 2022Q3

REPORT INFORMATION
  Report Type: Spontaneous
  Country: US (occurrence: US)
  Receive Date: 20220415
  Receipt Date: 20220720
  Transmission Date: 20221026
  Serious: No
  Sender: FDA-Public Use
  Company Number: US-AIMMUNE THERAPEUTICS, INC.-2022AIMT00303

PATIENT

DRUGS (7)
  1. PALFORZIA [Suspect]
     Active Substance: PEANUT
     Indication: Food allergy
     Dosage: 20 MG, 1X/DAY, LAST DOSE PRIOR EVENTS ONSET
     Route: 048
     Dates: start: 20220413, end: 20220413
  2. PALFORZIA [Suspect]
     Active Substance: PEANUT
     Dosage: 12 MG, 1X/DAY, DOSE DECREASED
     Route: 048
     Dates: start: 20220414, end: 20220503
  3. PALFORZIA [Suspect]
     Active Substance: PEANUT
     Dosage: 12 MG, ONCE,LAST DOSE PRIOR RECURRING BELLY PAIN/ABDOMINAL PAIN
     Route: 048
     Dates: start: 20220414, end: 20220414
  4. PALFORZIA [Suspect]
     Active Substance: PEANUT
     Dosage: 12 MG, ONCE,LAST DOSE PRIOR VIRAL ILLNESS
     Route: 048
     Dates: start: 20220503, end: 20220503
  5. PALFORZIA [Suspect]
     Active Substance: PEANUT
     Dosage: 12 MG, 1X/DAY, DOSE RESUMED
     Route: 048
     Dates: start: 20220506, end: 20220508
  6. PALFORZIA [Suspect]
     Active Substance: PEANUT
     Dosage: 12 MG, ONCE, LAST DOSE PRIOR DIARRHEA
     Route: 048
     Dates: start: 20220508, end: 20220508
  7. SINGULAIR [Concomitant]
     Active Substance: MONTELUKAST SODIUM
     Indication: Product used for unknown indication
     Dosage: UNK

REACTIONS (9)
  - Pallor [Recovered/Resolved]
  - Behaviour disorder [Recovered/Resolved]
  - Diarrhoea [Recovered/Resolved]
  - Viral infection [Recovered/Resolved]
  - Nasopharyngitis [Recovered/Resolved]
  - Vomiting [Recovered/Resolved]
  - Cough [Recovered/Resolved]
  - Abdominal pain [Recovered/Resolved]
  - Nausea [Recovered/Resolved]

NARRATIVE: CASE EVENT DATE: 20220413
